FAERS Safety Report 4674951-7 (Version None)
Quarter: 2005Q2

REPORT INFORMATION
  Report Type: 
  Country: None (occurrence: None)
  Receive Date: 20050525
  Receipt Date: 20050517
  Transmission Date: 20051028
  Serious: Yes (Congenital Anomaly)
  Sender: FDA-Public Use
  Company Number: 2004-05-1056

PATIENT
  Age: 1 Day
  Weight: 3.8 kg

DRUGS (4)
  1. PEG-INTRON (PEGINTERFERON ALFA-2B) REDIPEN [Suspect]
     Indication: HEPATITIS C
     Dosage: 80 MCG SUBCUTANEOUS
     Route: 058
     Dates: start: 20040511, end: 20040512
  2. REBETOL [Suspect]
     Indication: HEPATITIS C
     Dosage: 800 MG ORAL
     Route: 048
     Dates: start: 20040511, end: 20040512
  3. MIDOL [Concomitant]
  4. PRENATAL VITAMINS [Concomitant]

REACTIONS (3)
  - DRUG EXPOSURE DURING PREGNANCY [None]
  - HYDROCELE [None]
  - TESTICULAR DISORDER [None]
